FAERS Safety Report 9057871 (Version 1)
Quarter: 2013Q1

REPORT INFORMATION
  Report Type: Spontaneous
  Country: US (occurrence: None)
  Receive Date: 20130204
  Receipt Date: 20130204
  Transmission Date: 20140127
  Serious: No
  Sender: FDA-Public Use
  Company Number: None

PATIENT
  Age: 72 Year
  Sex: Male
  Weight: 83.92 kg

DRUGS (1)
  1. FINASTERIDE [Suspect]
     Indication: URINE FLOW DECREASED
     Dates: start: 20120810, end: 20130107

REACTIONS (4)
  - Psoriasis [None]
  - Erectile dysfunction [None]
  - Sperm concentration decreased [None]
  - Nipple pain [None]
